FAERS Safety Report 7241153-X (Version None)
Quarter: 2011Q1

REPORT INFORMATION
  Report Type: 
  Country: None (occurrence: None)
  Receive Date: 20110124
  Receipt Date: 20110120
  Transmission Date: 20110831
  Serious: Yes (Death)
  Sender: FDA-Public Use
  Company Number: NL-ABBOTT-11P-114-0699412-00

PATIENT
  Sex: Male
  Weight: 72 kg

DRUGS (3)
  1. HUMIRA [Suspect]
     Indication: SPONDYLITIS
     Route: 058
     Dates: start: 20101201
  2. SULFASALAZINE [Concomitant]
     Indication: SPONDYLITIS
     Route: 048
     Dates: start: 20101001
  3. CELEBREX [Concomitant]
     Indication: SPONDYLITIS
     Route: 048
     Dates: start: 20101001

REACTIONS (1)
  - COMPLETED SUICIDE [None]
